FAERS Safety Report 6983024-X (Version None)
Quarter: 2010Q3

REPORT INFORMATION
  Report Type: 
  Country: None (occurrence: None)
  Receive Date: 20100914
  Receipt Date: 20100504
  Transmission Date: 20110219
  Serious: No
  Sender: FDA-Public Use
  Company Number: US-PFIZER INC-2010056850

PATIENT
  Sex: Female
  Weight: 61 kg

DRUGS (2)
  1. LYRICA [Suspect]
     Indication: PAIN IN JAW
     Dosage: UNK
     Route: 048
     Dates: start: 20100201
  2. OMEGA-3/VITAMIN A/VITAMIN D/VITAMIN E [Concomitant]
     Dosage: UNK

REACTIONS (1)
  - LIBIDO DECREASED [None]
